FAERS Safety Report 4909212-1 (Version None)
Quarter: 2006Q1

REPORT INFORMATION
  Report Type: 
  Country: None (occurrence: None)
  Receive Date: 20060209
  Receipt Date: 20060209
  Transmission Date: 20060701
  Serious: Yes (Hospitalization)
  Sender: FDA-Public Use
  Company Number: None

PATIENT
  Age: 33 Year
  Sex: Female

DRUGS (15)
  1. VANCOMYCIN [Suspect]
     Dosage: 1500 MG BID IV
     Route: 042
     Dates: start: 20051023, end: 20051030
  2. VALTREX [Concomitant]
  3. PAROXETINE HCL [Concomitant]
  4. DESOGEN [Concomitant]
  5. PROCHLORPERAZINE [Concomitant]
  6. TYLENOL [Concomitant]
  7. VITAMIN B6 [Concomitant]
  8. ATIVAN [Concomitant]
  9. NEOMYCIN/BACTRACIN/POLYMYCIN B [Concomitant]
  10. IMODIUM [Concomitant]
  11. LORTAB [Concomitant]
  12. FLUCONAZOLE [Concomitant]
  13. PROTONIX [Concomitant]
  14. BUPROPION [Concomitant]
  15. AMBIEN [Concomitant]

REACTIONS (1)
  - DIARRHOEA [None]
